FAERS Safety Report 5240526-4 (Version None)
Quarter: 2007Q1

REPORT INFORMATION
  Report Type: 
  Country: None (occurrence: None)
  Receive Date: 20070219
  Receipt Date: 20070205
  Transmission Date: 20070707
  Serious: Yes (Hospitalization, Other)
  Sender: FDA-Public Use
  Company Number: PHNU2006DE04203

PATIENT
  Age: 79 Year
  Sex: Female
  Weight: 69 kg

DRUGS (6)
  1. ZOMETA [Suspect]
     Indication: METASTASES TO BONE
     Dosage: 4 MG, QMO
     Route: 042
     Dates: start: 20040301, end: 20061001
  2. MITOXANTRONE [Concomitant]
     Dosage: 1 DF, QMO
     Route: 042
     Dates: start: 20040501, end: 20051001
  3. MITOXANTRONE [Concomitant]
     Dosage: 1 DF, QMO
     Route: 042
     Dates: start: 20060301, end: 20060701
  4. TAMOXIFEN CITRATE [Concomitant]
     Route: 065
     Dates: start: 20040501
  5. LETROZOLE [Concomitant]
     Route: 065
     Dates: start: 20051001, end: 20060301
  6. FASLODEX [Concomitant]
     Dates: start: 20061001

REACTIONS (12)
  - ANOREXIA [None]
  - BLOOD CREATININE INCREASED [None]
  - BLOOD UREA INCREASED [None]
  - DEHYDRATION [None]
  - DIALYSIS [None]
  - GASTROINTESTINAL INFECTION [None]
  - GLOMERULAR FILTRATION RATE DECREASED [None]
  - NAUSEA [None]
  - OLIGURIA [None]
  - RENAL FAILURE ACUTE [None]
  - RENAL FAILURE CHRONIC [None]
  - VOMITING [None]
